FAERS Safety Report 6867784-4 (Version None)
Quarter: 2010Q3

REPORT INFORMATION
  Report Type: 
  Country: None (occurrence: None)
  Receive Date: 20100722
  Receipt Date: 20100722
  Transmission Date: 20110219
  Serious: Yes (Other)
  Sender: FDA-Public Use
  Company Number: None

PATIENT
  Age: 60 Year
  Sex: Female

DRUGS (2)
  1. TOPIRAMATE [Suspect]
     Indication: CONVULSION
     Dosage: 100MG BID PO
     Route: 048
  2. TOPIRAMATE [Suspect]
     Indication: HEADACHE
     Dosage: 100MG BID PO
     Route: 048

REACTIONS (4)
  - BALANCE DISORDER [None]
  - DELIRIUM [None]
  - MENTAL IMPAIRMENT [None]
  - PRODUCT SUBSTITUTION ISSUE [None]
